FAERS Safety Report 19899803 (Version 1)
Quarter: 2021Q3

REPORT INFORMATION
  Report Type: Spontaneous
  Country: FR (occurrence: FR)
  Receive Date: 20210930
  Receipt Date: 20210930
  Transmission Date: 20211014
  Serious: Yes (Other)
  Sender: FDA-Public Use
  Company Number: FR-GLAXOSMITHKLINE-FRCH2021067923

PATIENT
  Age: 33 Year
  Sex: Male

DRUGS (1)
  1. LAMISIL [Suspect]
     Active Substance: TERBINAFINE HYDROCHLORIDE
     Indication: FUNGAL INFECTION
     Dosage: 1 DF, QD
     Route: 065
     Dates: start: 20210921

REACTIONS (7)
  - Off label use [Unknown]
  - Hepatitis [Unknown]
  - Arthralgia [Unknown]
  - Headache [Unknown]
  - Feeling abnormal [Unknown]
  - Insomnia [Unknown]
  - Myalgia [Unknown]

NARRATIVE: CASE EVENT DATE: 20210921
